FAERS Safety Report 4502156-9 (Version None)
Quarter: 2004Q4

REPORT INFORMATION
  Report Type: 
  Country: None (occurrence: None)
  Receive Date: 20041109
  Receipt Date: 20041027
  Transmission Date: 20050328
  Serious: Yes (Death, Hospitalization)
  Sender: FDA-Public Use
  Company Number: 2004082515

PATIENT
  Age: 90 Year
  Sex: Female

DRUGS (4)
  1. SULPERAZON (CEFOPERAZONE, SULBACTAM) [Suspect]
     Indication: PROPHYLAXIS
     Dosage: 2 GRAM (1 GRAM, 2 IN 1 D), INTRAVENOUS
     Route: 042
     Dates: start: 20040908, end: 20040928
  2. SULPERAZON (CEFOPERAZONE, SULBACTAM) [Suspect]
     Indication: PYREXIA
     Dosage: 2 GRAM (1 GRAM, 2 IN 1 D), INTRAVENOUS
     Route: 042
     Dates: start: 20040908, end: 20040928
  3. SULPERAZON (CEFOPERAZONE, SULBACTAM) [Suspect]
     Indication: URINARY TRACT INFECTION
     Dosage: 2 GRAM (1 GRAM, 2 IN 1 D), INTRAVENOUS
     Route: 042
     Dates: start: 20040908, end: 20040928
  4. SENNOSIDE A+B (SENNOSIDE A+B) [Concomitant]

REACTIONS (3)
  - CLOSTRIDIUM COLITIS [None]
  - DIARRHOEA [None]
  - URINARY TRACT INFECTION [None]
